FAERS Safety Report 4637342-0 (Version None)
Quarter: 2005Q2

REPORT INFORMATION
  Report Type: 
  Country: None (occurrence: None)
  Receive Date: 20050418
  Receipt Date: 20050406
  Transmission Date: 20051028
  Serious: Yes (Hospitalization, Other)
  Sender: FDA-Public Use
  Company Number: US-BRISTOL-MYERS SQUIBB COMPANY-12923678

PATIENT
  Age: 35 Year
  Sex: Female
  Weight: 163 kg

DRUGS (24)
  1. STADOL [Suspect]
     Indication: MIGRAINE
     Route: 045
     Dates: start: 19990601
  2. XANAX [Suspect]
     Route: 048
  3. AMBIEN [Suspect]
  4. DOXEPIN HCL [Concomitant]
  5. PROZAC [Concomitant]
  6. TRAZODONE HCL [Concomitant]
     Route: 048
  7. VALIUM [Concomitant]
     Route: 048
  8. OXYCONTIN [Concomitant]
     Dosage: DOSAGE: 20MG AND 40MG
     Route: 048
  9. TYLENOL W/ CODEINE NO. 3 [Concomitant]
  10. DARVOCET [Concomitant]
  11. NAPROXEN [Concomitant]
     Route: 048
  12. LOTRISONE [Concomitant]
  13. NASACORT [Concomitant]
  14. EFFEXOR XR [Concomitant]
  15. DEPAKOTE ER [Concomitant]
  16. ALBUTEROL [Concomitant]
     Route: 055
  17. SINGULAIR [Concomitant]
  18. LASIX [Concomitant]
  19. GABITRIL [Concomitant]
  20. XOPENEX [Concomitant]
  21. AMITRIPTYLINE HCL TAB [Concomitant]
  22. NEURONTIN [Concomitant]
  23. METHOCARBAMOL [Concomitant]
  24. PHENERGAN [Concomitant]

REACTIONS (12)
  - AMNESIA [None]
  - ANXIETY [None]
  - ARTHRITIS [None]
  - CARDIAC FAILURE CONGESTIVE [None]
  - DEPENDENCE [None]
  - DIABETES MELLITUS [None]
  - DRUG TOXICITY [None]
  - LIVER DISORDER [None]
  - MIGRAINE [None]
  - RENAL DISORDER [None]
  - SUICIDE ATTEMPT [None]
  - WEIGHT INCREASED [None]
